FAERS Safety Report 10244749 (Version 1)
Quarter: 2014Q2

REPORT INFORMATION
  Report Type: Spontaneous
  Country: US (occurrence: None)
  Receive Date: 20140616
  Receipt Date: 20140616
  Transmission Date: 20141212
  Serious: No
  Sender: FDA-Public Use
  Company Number: None

PATIENT
  Age: 47 Year
  Sex: Female
  Weight: 93.44 kg

DRUGS (1)
  1. FLUTICASONE PROPIONATE [Suspect]
     Indication: PHARYNGITIS STREPTOCOCCAL
     Dosage: 2 SPRAYS PER DAY ONCE DAILY NASAL SPRAY
     Route: 045
     Dates: start: 20140611, end: 20140613

REACTIONS (1)
  - Epistaxis [None]
